FAERS Safety Report 9834615 (Version 2)
Quarter: 2014Q1

REPORT INFORMATION
  Report Type: Spontaneous
  Country: DE (occurrence: DE)
  Receive Date: 20140122
  Receipt Date: 20140307
  Transmission Date: 20141002
  Serious: Yes (Other)
  Sender: FDA-Public Use
  Company Number: DE-UCBSA-109403

PATIENT
  Age: 75 Year
  Sex: Female

DRUGS (4)
  1. NEUPRO [Suspect]
     Indication: POLYNEUROPATHY
     Dosage: TAKEN FOR 1/4 YEARS,1MG/24 HOUR
  2. ESIDRIX [Concomitant]
  3. TORASEMID [Concomitant]
  4. METAMIZOL [Concomitant]

REACTIONS (6)
  - Angina pectoris [Unknown]
  - Cardiac failure [Unknown]
  - Heart rate decreased [Unknown]
  - Blood pressure increased [Unknown]
  - Dizziness [Recovering/Resolving]
  - Fatigue [Recovering/Resolving]
